FAERS Safety Report 8846237 (Version 1)
Quarter: 2012Q4

REPORT INFORMATION
  Report Type: 
  Country: IT (occurrence: IT)
  Receive Date: 20121017
  Receipt Date: 20121017
  Transmission Date: 20130627
  Serious: Yes (Hospitalization)
  Sender: FDA-Public Use
  Company Number: PHHY2012IT090431

PATIENT
  Age: 22 Year
  Sex: Female

DRUGS (2)
  1. CITALOPRAM [Suspect]
     Dosage: 1680 mg, UNK
     Route: 048
     Dates: start: 20120706, end: 20120706
  2. SERENASE [Suspect]
     Dosage: 30 mg, UNK
     Route: 048
     Dates: start: 20120706, end: 20120706

REACTIONS (4)
  - Drug abuse [Recovering/Resolving]
  - Toxicity to various agents [Recovering/Resolving]
  - Oropharyngeal spasm [Unknown]
  - Clonic convulsion [Recovering/Resolving]
